FAERS Safety Report 24635566 (Version 3)
Quarter: 2025Q3

REPORT INFORMATION
  Report Type: Spontaneous
  Country: EU (occurrence: EU)
  Receive Date: 20241119
  Receipt Date: 20250803
  Transmission Date: 20251021
  Serious: Yes (Other)
  Sender: ALEXION PHARMACEUTICALS
  Company Number: EU-AstraZeneca-CH-00749591A

PATIENT
  Age: 55 Year
  Sex: Male
  Weight: 65 kg

DRUGS (5)
  1. DURVALUMAB [Suspect]
     Active Substance: DURVALUMAB
     Indication: Product used for unknown indication
     Dosage: 1500 MILLIGRAM, Q3W
     Dates: start: 202306, end: 202309
  2. METOPROLOL [Concomitant]
     Active Substance: METOPROLOL
     Route: 065
  3. Udc [Concomitant]
  4. PANTOZOL [Concomitant]
     Active Substance: PANTOPRAZOLE SODIUM
     Route: 065
  5. Novalgin [Concomitant]
     Route: 065

REACTIONS (2)
  - Malignant neoplasm progression [Unknown]
  - Polyneuropathy [Recovered/Resolved]

NARRATIVE: CASE EVENT DATE: 20230901
